FAERS Safety Report 8637137 (Version 3)
Quarter: 2013Q4

REPORT INFORMATION
  Report Type: Report from Study
  Country: FR (occurrence: FR)
  Receive Date: 20120627
  Receipt Date: 20131028
  Transmission Date: 20140711
  Serious: Yes (Hospitalization)
  Sender: FDA-Public Use
  Company Number: FR-BIOGENIDEC-2012BI021781

PATIENT
  Age: 57 Year
  Sex: Female

DRUGS (3)
  1. TYSABRI [Suspect]
     Indication: MULTIPLE SCLEROSIS
     Route: 042
     Dates: start: 20070911, end: 20100104
  2. GABAPENTINE [Concomitant]
     Indication: PAIN
     Route: 048
     Dates: start: 20100309
  3. METHYLPREDNISOLONE [Concomitant]
     Route: 042
     Dates: start: 201004, end: 201004

REACTIONS (1)
  - Intervertebral disc protrusion [Recovered/Resolved]
